FAERS Safety Report 4512283-8 (Version None)
Quarter: 2004Q4

REPORT INFORMATION
  Report Type: 
  Country: None (occurrence: None)
  Receive Date: 20041129
  Receipt Date: 20040910
  Transmission Date: 20050328
  Serious: Yes (Other)
  Sender: FDA-Public Use
  Company Number: JP-GLAXOSMITHKLINE-B0345406A

PATIENT
  Age: 48 Year
  Sex: Male
  Weight: 57 kg

DRUGS (4)
  1. ZEFIX [Suspect]
     Indication: HEPATITIS B
     Dosage: 100MG PER DAY
     Route: 048
     Dates: start: 20030325
  2. FAMOTIDINE [Suspect]
     Indication: GASTRIC ULCER
     Dosage: 20MG TWICE PER DAY
     Route: 048
     Dates: start: 20030317, end: 20040820
  3. SELBEX [Concomitant]
     Indication: HEPATITIS B
     Dosage: 150MG PER DAY
     Route: 048
     Dates: start: 20030317
  4. URSO [Concomitant]
     Indication: HEPATITIS B
     Dosage: 300MG PER DAY
     Route: 048
     Dates: start: 20030317

REACTIONS (4)
  - ASTHENIA [None]
  - BLOOD CREATINE PHOSPHOKINASE INCREASED [None]
  - PAIN IN EXTREMITY [None]
  - RHABDOMYOLYSIS [None]
